FAERS Safety Report 9158460 (Version 1)
Quarter: 2013Q1

REPORT INFORMATION
  Report Type: Spontaneous
  Country: CH (occurrence: CH)
  Receive Date: 20130312
  Receipt Date: 20130312
  Transmission Date: 20140127
  Serious: Yes (Hospitalization)
  Sender: FDA-Public Use
  Company Number: CH-VERTEX PHARMACEUTICALS INC.-2013-003386

PATIENT
  Age: 70 Year
  Sex: Male
  Weight: 63 kg

DRUGS (6)
  1. INCIVO [Suspect]
     Indication: HEPATITIS C
     Dosage: 375 MG, TID
     Route: 048
     Dates: start: 20121002, end: 20121221
  2. PEGYLATED INTERFERON [Concomitant]
     Indication: HEPATITIS C
     Dosage: DOSAGE FORM: UNSPECIFIED
     Route: 051
     Dates: start: 20120509
  3. COPEGUS [Concomitant]
     Indication: HEPATITIS C
     Dosage: DOSAGE FORM: FILM COATED TABLET
     Route: 048
     Dates: start: 20120509
  4. CERTICAN [Concomitant]
     Indication: IMMUNOSUPPRESSION
     Dosage: DOSAGE FORM: UNSPECIFIED
     Route: 048
     Dates: start: 201212
  5. CERTICAN [Concomitant]
     Dosage: DOSAGE FORM: UNSPECIFIED
     Route: 048
     Dates: start: 1998
  6. CELLCEPT [Concomitant]
     Indication: IMMUNOSUPPRESSION
     Dosage: DOSAGE FORM: UNSPECIFIED
     Route: 048
     Dates: start: 1998

REACTIONS (1)
  - Renal failure acute [Recovered/Resolved]
